FAERS Safety Report 20864166 (Version 2)
Quarter: 2022Q2

REPORT INFORMATION
  Report Type: Report from Study
  Country: US (occurrence: US)
  Receive Date: 20220523
  Receipt Date: 20220530
  Transmission Date: 20220721
  Serious: Yes (Death, Other)
  Sender: FDA-Public Use
  Company Number: US-BRISTOL-MYERS SQUIBB COMPANY-2022-045431

PATIENT
  Age: 61 Year
  Sex: Male

DRUGS (2)
  1. OPDIVO [Suspect]
     Active Substance: NIVOLUMAB
     Indication: Product used for unknown indication
     Dates: start: 20210101
  2. YERVOY [Suspect]
     Active Substance: IPILIMUMAB
     Indication: Product used for unknown indication
     Dates: start: 20210101

REACTIONS (1)
  - Death [Fatal]

NARRATIVE: CASE EVENT DATE: 20220201
